FAERS Safety Report 15250340 (Version 1)
Quarter: 2018Q3

REPORT INFORMATION
  Report Type: Spontaneous
  Country: US (occurrence: US)
  Receive Date: 20180807
  Receipt Date: 20180807
  Transmission Date: 20181010
  Serious: Yes (Other)
  Sender: FDA-Public Use
  Company Number: US-MYLANLABS-2018M1058077

PATIENT
  Age: 56 Year
  Sex: Female
  Weight: 61 kg

DRUGS (2)
  1. ARMODAFINIL TABLETS [Suspect]
     Active Substance: ARMODAFINIL
     Indication: SYSTEMIC LUPUS ERYTHEMATOSUS
  2. ARMODAFINIL TABLETS [Suspect]
     Active Substance: ARMODAFINIL
     Indication: FATIGUE
     Dosage: 250 MG, UNK
     Route: 048

REACTIONS (5)
  - Fatigue [Recovering/Resolving]
  - Heat stroke [Recovering/Resolving]
  - Loss of consciousness [Recovered/Resolved with Sequelae]
  - Migraine [Recovering/Resolving]
  - Confusional state [Recovering/Resolving]

NARRATIVE: CASE EVENT DATE: 20180720
